FAERS Safety Report 5237863-6 (Version None)
Quarter: 2007Q1

REPORT INFORMATION
  Report Type: 
  Country: None (occurrence: None)
  Receive Date: 20070214
  Receipt Date: 20070130
  Transmission Date: 20070707
  Serious: Yes (Hospitalization, Other)
  Sender: FDA-Public Use
  Company Number: US-SHR-US-2007-000573

PATIENT
  Age: 53 Year
  Sex: Female

DRUGS (5)
  1. BETASERON [Suspect]
     Indication: SECONDARY PROGRESSIVE MULTIPLE SCLEROSIS
     Dosage: 8 MIU, 3X/WEEK
     Route: 058
     Dates: start: 20030701
  2. ZOLOFT [Concomitant]
     Indication: DEPRESSION
     Dosage: 50 MG, 1X/DAY
     Dates: start: 20020601
  3. LEVOXYL [Concomitant]
     Indication: THYROID DISORDER
     Dosage: 50 MG, 1X/DAY
     Dates: start: 20020401
  4. LORAZEPAM [Concomitant]
     Dosage: .5 UNK, BED T.
     Dates: start: 20030101
  5. IBUPROFEN [Concomitant]
     Dosage: 600 MG, AS REQ'D

REACTIONS (9)
  - HEMIPLEGIA [None]
  - INFLUENZA LIKE ILLNESS [None]
  - INJECTION SITE ATROPHY [None]
  - INJECTION SITE DISCOLOURATION [None]
  - INJECTION SITE REACTION [None]
  - LIPOATROPHY [None]
  - MUSCLE TIGHTNESS [None]
  - NEUROMYOPATHY [None]
  - URINARY INCONTINENCE [None]
